FAERS Safety Report 24819953 (Version 3)
Quarter: 2025Q2

REPORT INFORMATION
  Report Type: Report from Study
  Country: US (occurrence: US)
  Receive Date: 20250108
  Receipt Date: 20250510
  Transmission Date: 20250717
  Serious: Yes (Life-Threatening, Hospitalization, Other)
  Sender: AMGEN
  Company Number: US-AMGEN-USASP2025000335

PATIENT
  Age: 70 Year
  Sex: Male

DRUGS (1)
  1. KRYSTEXXA [Suspect]
     Active Substance: PEGLOTICASE
     Indication: Gout
     Dosage: UNK, Q2WK (EVERY 2 WEEKS)
     Route: 040
     Dates: start: 20240822

REACTIONS (2)
  - Pneumonia [Unknown]
  - Dialysis [Unknown]

NARRATIVE: CASE EVENT DATE: 20240101
